FAERS Safety Report 4358331-X (Version None)
Quarter: 2004Q2

REPORT INFORMATION
  Report Type: 
  Country: None (occurrence: None)
  Receive Date: 20040510
  Receipt Date: 20040427
  Transmission Date: 20050107
  Serious: Yes (Other)
  Sender: FDA-Public Use
  Company Number: 2004-BP-03275NB

PATIENT
  Age: 71 Year
  Sex: Male

DRUGS (8)
  1. MICARDIS [Suspect]
     Route: 048
  2. LIPITOR [Concomitant]
  3. BLOPRESS (CANDESARTAN CILEXETIL) [Concomitant]
  4. DEPAKENE [Concomitant]
  5. NIVADIL (NILVADIPINE) [Concomitant]
  6. LOPRESSOR [Concomitant]
  7. TICLOPIDINE HCL [Concomitant]
  8. TRICHLORMETHIAZIDE [Concomitant]

REACTIONS (1)
  - BLOOD CREATINE PHOSPHOKINASE INCREASED [None]
